FAERS Safety Report 13350002 (Version 1)
Quarter: 2017Q1

REPORT INFORMATION
  Report Type: Spontaneous
  Country: JP (occurrence: JP)
  Receive Date: 20170320
  Receipt Date: 20170320
  Transmission Date: 20170429
  Serious: Yes (Other)
  Sender: FDA-Public Use
  Company Number: JP-PFIZER INC-2017112803

PATIENT
  Sex: Male

DRUGS (3)
  1. TENORMIN [Suspect]
     Active Substance: ATENOLOL
     Dosage: DOSE UNKNOWN
     Route: 048
  2. BAYASPIRIN [Concomitant]
     Active Substance: ASPIRIN
     Dosage: DOSE UNKNOWN
     Route: 048
  3. TENORMIN [Suspect]
     Active Substance: ATENOLOL
     Dosage: DOSE UNKNOWN, SPLITTING THE TABLET IN HALF.
     Route: 048

REACTIONS (4)
  - Presyncope [Unknown]
  - Intentional product misuse [Unknown]
  - Urine output decreased [Unknown]
  - Hypotension [Unknown]
